FAERS Safety Report 25368994 (Version 1)
Quarter: 2025Q2

REPORT INFORMATION
  Report Type: Spontaneous
  Country: US (occurrence: US)
  Receive Date: 20250528
  Receipt Date: 20250528
  Transmission Date: 20250717
  Serious: No
  Sender: CIPLA
  Company Number: US-CIPLA LTD.-2024US15405

PATIENT

DRUGS (2)
  1. ALBUTEROL [Suspect]
     Active Substance: ALBUTEROL
     Indication: Nasal congestion
     Dosage: 180 MICROGRAM, BID (2 PUFFS EVERY 6 HOURS FOR CONGESTION BUT TAKES IT 2 TIMES A DAY, REGULAR USER)
     Route: 065
  2. ALBUTEROL [Suspect]
     Active Substance: ALBUTEROL
     Dosage: 180 MICROGRAM, BID (2 PUFFS EVERY 6 HOURS FOR CONGESTION BUT TAKES IT 2 TIMES A DAY)
     Route: 065
     Dates: start: 202412

REACTIONS (2)
  - Drug dose omission by device [Unknown]
  - Device delivery system issue [Unknown]

NARRATIVE: CASE EVENT DATE: 20241201
